FAERS Safety Report 10016555 (Version 4)
Quarter: 2014Q2

REPORT INFORMATION
  Report Type: Report from Study
  Country: AU (occurrence: AU)
  Receive Date: 20140317
  Receipt Date: 20140424
  Transmission Date: 20141212
  Serious: Yes (Death, Other)
  Sender: FDA-Public Use
  Company Number: PHHY2014AU032148

PATIENT
  Sex: Male

DRUGS (2)
  1. CLOZARIL [Suspect]
     Dosage: 275 MG
     Dates: start: 20081218, end: 20140401
  2. CLOPINE [Suspect]
     Dosage: UNK UKN, UNK

REACTIONS (4)
  - Death [Fatal]
  - Brain neoplasm [Unknown]
  - Metastatic neoplasm [Unknown]
  - Wrong technique in drug usage process [Unknown]
